FAERS Safety Report 5113460-8 (Version None)
Quarter: 2006Q3

REPORT INFORMATION
  Report Type: 
  Country: None (occurrence: None)
  Receive Date: 20060920
  Receipt Date: 20060907
  Transmission Date: 20061208
  Serious: Yes (Other)
  Sender: FDA-Public Use
  Company Number: HQWYE420607SEP06

PATIENT
  Age: 57 Year
  Sex: Female

DRUGS (1)
  1. SOMAC (PANTOPRAZOLE, UNSPEC) [Suspect]
     Dates: start: 20050101

REACTIONS (2)
  - MALAISE [None]
  - RENAL FAILURE [None]
